FAERS Safety Report 20058274 (Version 1)
Quarter: 2021Q4

REPORT INFORMATION
  Report Type: Report from Study
  Country: TH (occurrence: TH)
  Receive Date: 20211111
  Receipt Date: 20211111
  Transmission Date: 20220304
  Serious: Yes (Life-Threatening, Hospitalization, Other)
  Sender: FDA-Public Use
  Company Number: TH-SA-SAC20210518001499

PATIENT
  Age: 27 Year
  Sex: Male

DRUGS (10)
  1. RIFAPENTINE [Suspect]
     Active Substance: RIFAPENTINE
     Indication: Latent tuberculosis
     Dosage: 900 MG, QW
     Route: 048
     Dates: start: 20200829, end: 20201115
  2. RIFAPENTINE [Suspect]
     Active Substance: RIFAPENTINE
     Indication: HIV infection
     Dosage: UNK
  3. ISONIAZID [Suspect]
     Active Substance: ISONIAZID
     Indication: Latent tuberculosis
     Dosage: 900 MG, QW
     Route: 048
     Dates: start: 20200829, end: 20201115
  4. ISONIAZID [Suspect]
     Active Substance: ISONIAZID
     Indication: HIV infection
  5. EFAVIRENZ\EMTRICITABINE\TENOFOVIR DISOPROXIL FUMARATE [Suspect]
     Active Substance: EFAVIRENZ\EMTRICITABINE\TENOFOVIR DISOPROXIL FUMARATE
     Indication: Antiretroviral therapy
     Dosage: (300/200/600 MG), QD
     Route: 048
     Dates: start: 20200720, end: 20201127
  6. EFAVIRENZ\EMTRICITABINE\TENOFOVIR DISOPROXIL FUMARATE [Suspect]
     Active Substance: EFAVIRENZ\EMTRICITABINE\TENOFOVIR DISOPROXIL FUMARATE
     Dosage: 300/200/600 MG, QD
     Route: 048
     Dates: start: 20201130, end: 20210304
  7. EFAVIRENZ\EMTRICITABINE\TENOFOVIR DISOPROXIL FUMARATE [Suspect]
     Active Substance: EFAVIRENZ\EMTRICITABINE\TENOFOVIR DISOPROXIL FUMARATE
     Dosage: 300/200/600 MG, QD
     Route: 048
     Dates: start: 20210707
  8. VITAMIN K [MENADIONE SODIUM BISULFITE] [Concomitant]
     Dosage: 10 MG, QD
     Route: 041
     Dates: start: 20210315, end: 20210315
  9. VITAMIN K [MENADIONE SODIUM BISULFITE] [Concomitant]
     Dosage: 10 MG, QD
     Route: 041
     Dates: start: 20210513, end: 20210513
  10. PYRIDOXINE [Concomitant]
     Active Substance: PYRIDOXINE
     Indication: Supplementation therapy
     Dosage: 50 MG, QW
     Route: 048
     Dates: start: 20200829, end: 20201115

REACTIONS (34)
  - Autoimmune hepatitis [Recovered/Resolved]
  - Pneumothorax [Recovered/Resolved]
  - Respiratory failure [Recovered/Resolved]
  - Pneumonia legionella [Recovering/Resolving]
  - Pneumonia necrotising [Recovering/Resolving]
  - Fungaemia [Recovering/Resolving]
  - Bicytopenia [Recovering/Resolving]
  - Thrombocytopenia [Recovering/Resolving]
  - Systemic inflammatory response syndrome [Recovering/Resolving]
  - Hypercalcaemia [Recovering/Resolving]
  - Hyponatraemia [Recovering/Resolving]
  - Steroid diabetes [Recovering/Resolving]
  - Clostridium difficile infection [Recovering/Resolving]
  - Drug-induced liver injury [Not Recovered/Not Resolved]
  - Condition aggravated [Not Recovered/Not Resolved]
  - Autoimmune hepatitis [Not Recovered/Not Resolved]
  - Vomiting [Not Recovered/Not Resolved]
  - Decreased appetite [Not Recovered/Not Resolved]
  - Jaundice [Not Recovered/Not Resolved]
  - Eye colour change [Not Recovered/Not Resolved]
  - Blood bilirubin increased [Not Recovered/Not Resolved]
  - Blood albumin decreased [Not Recovered/Not Resolved]
  - Oedema peripheral [Not Recovered/Not Resolved]
  - Gallbladder cholesterolosis [Not Recovered/Not Resolved]
  - Hepatic steatosis [Not Recovered/Not Resolved]
  - Peripheral swelling [Not Recovered/Not Resolved]
  - Alanine aminotransferase increased [Not Recovered/Not Resolved]
  - Aspartate aminotransferase increased [Not Recovered/Not Resolved]
  - Weight increased [Unknown]
  - Pyrexia [Unknown]
  - Productive cough [Unknown]
  - Pneumonia [Unknown]
  - Dyspnoea [Unknown]
  - Weight decreased [Unknown]

NARRATIVE: CASE EVENT DATE: 20201111
